FAERS Safety Report 17349770 (Version 5)
Quarter: 2021Q2

REPORT INFORMATION
  Report Type: Spontaneous
  Country: FR (occurrence: FR)
  Receive Date: 20200130
  Receipt Date: 20210524
  Transmission Date: 20210716
  Serious: Yes (Life-Threatening, Hospitalization, Disabling, Other)
  Sender: FDA-Public Use
  Company Number: FR-AUROBINDO-AUR-APL-2020-003634

PATIENT
  Age: 59 Year
  Sex: Female
  Weight: 76.4 kg

DRUGS (12)
  1. AMOXICILLIN ARROW 500MG [Suspect]
     Active Substance: AMOXICILLIN
     Indication: PRODUCT USED FOR UNKNOWN INDICATION
     Dosage: UNK
     Route: 048
  2. VERATRAN [Concomitant]
     Active Substance: CLOTIAZEPAM
     Indication: PRODUCT USED FOR UNKNOWN INDICATION
     Dosage: 0.5 TABLET IN THE MORNING, 0.5 AT NOON AND 1 TABLET IN THE EVENING
     Dates: start: 201509
  3. SERESTA [Concomitant]
     Active Substance: OXAZEPAM
     Indication: PRODUCT USED FOR UNKNOWN INDICATION
     Dosage: FROM 0.5 TABLET TO 1 TABLET DAILY
     Dates: start: 20180426, end: 201807
  4. VERATRAN [Concomitant]
     Active Substance: CLOTIAZEPAM
     Dosage: 0.5 TABLET IN THE MORNING, 0.5 AT NOON AND 1 TABLET IN THE EVENING
     Dates: start: 201804
  5. MIRTAZAPINE ARROW 15MG [Suspect]
     Active Substance: MIRTAZAPINE
     Indication: DEPRESSION
     Dosage: 10 MILLIGRAM, DAILY
     Route: 048
     Dates: start: 20180426
  6. SPIFEN [Suspect]
     Active Substance: IBUPROFEN
     Indication: PRODUCT USED FOR UNKNOWN INDICATION
     Dosage: UNK
     Route: 048
  7. PROPRANOLOL [Suspect]
     Active Substance: PROPRANOLOL HYDROCHLORIDE
     Indication: PRODUCT USED FOR UNKNOWN INDICATION
     Dosage: ONE TABLET IF NEEDED
     Dates: start: 20180813
  8. VERATRAN [Concomitant]
     Active Substance: CLOTIAZEPAM
     Dosage: 0.5 TABLET IN THE MORNING, 0.5 AT NOON AND 1 TABLET IN THE EVENING
     Dates: start: 201803
  9. PROPRANOLOL [Suspect]
     Active Substance: PROPRANOLOL HYDROCHLORIDE
     Dosage: ONE TABLET IF NEEDED
     Dates: start: 201811
  10. LISINOPRIL+HYDROCHLOROTHIAZIDE ARROW 20+12.5 MG [Suspect]
     Active Substance: HYDROCHLOROTHIAZIDE\LISINOPRIL
     Indication: PRODUCT USED FOR UNKNOWN INDICATION
     Dosage: 20 MG/12.5 MG
     Route: 048
     Dates: start: 20171116, end: 201811
  11. REVIA [Concomitant]
     Active Substance: NALTREXONE HYDROCHLORIDE
     Indication: PRODUCT USED FOR UNKNOWN INDICATION
     Dosage: UNK
     Dates: start: 20170414, end: 201806
  12. ESCITALOPRAM ARROW FILM?COATED TABLETS [Suspect]
     Active Substance: ESCITALOPRAM OXALATE
     Indication: DEPRESSION
     Dosage: FROM 20 MG TO 10 MG
     Route: 048
     Dates: start: 201505, end: 201811

REACTIONS (3)
  - Extra dose administered [Unknown]
  - Haemorrhagic stroke [Not Recovered/Not Resolved]
  - Reversible cerebral vasoconstriction syndrome [Not Recovered/Not Resolved]

NARRATIVE: CASE EVENT DATE: 20181120
